FAERS Safety Report 4435023-X (Version None)
Quarter: 2004Q3

REPORT INFORMATION
  Report Type: 
  Country: None (occurrence: None)
  Receive Date: 20040826
  Receipt Date: 20040826
  Transmission Date: 20050211
  Serious: No
  Sender: FDA-Public Use
  Company Number: None

PATIENT
  Age: 68 Year
  Sex: Male

DRUGS (1)
  1. MARCAIN 0.5 % [Suspect]
     Indication: PAIN MANAGEMENT
     Dosage: 270 ML ; 5 ML /HR
     Dates: start: 20040811, end: 20040812

REACTIONS (3)
  - BLOODY DISCHARGE [None]
  - MEDICAL DEVICE COMPLICATION [None]
  - WOUND SECRETION [None]
